FAERS Safety Report 10589968 (Version 1)
Quarter: 2014Q4

REPORT INFORMATION
  Report Type: Spontaneous
  Country: US (occurrence: None)
  Receive Date: 20141117
  Receipt Date: 20141117
  Transmission Date: 20150529
  Serious: No
  Sender: FDA-Public Use
  Company Number: None

PATIENT
  Age: 32 Year
  Sex: Male
  Weight: 65.3 kg

DRUGS (1)
  1. TRANADOL 50 MLG TV [Suspect]
     Active Substance: TRAMADOL
     Indication: PAIN
     Route: 048
     Dates: start: 20140811, end: 20140826

REACTIONS (5)
  - Loss of consciousness [None]
  - Fall [None]
  - Hot flush [None]
  - Drug hypersensitivity [None]
  - Seizure [None]

NARRATIVE: CASE EVENT DATE: 20140826
